FAERS Safety Report 9696797 (Version 2)
Quarter: 2013Q4

REPORT INFORMATION
  Report Type: Spontaneous
  Country: US (occurrence: US)
  Receive Date: 20131119
  Receipt Date: 20131119
  Transmission Date: 20140711
  Serious: No
  Sender: FDA-Public Use
  Company Number: US-GILEAD-2007-0014085

PATIENT
  Age: 46 Year
  Sex: Female
  Weight: 91.17 kg

DRUGS (12)
  1. LETAIRIS [Suspect]
     Indication: PULMONARY ARTERIAL HYPERTENSION
     Route: 048
     Dates: start: 20041207, end: 20070827
  2. LETAIRIS [Suspect]
     Route: 048
     Dates: start: 20070828
  3. ZETIA [Concomitant]
     Indication: MEDICAL DIET
     Route: 048
  4. ACYCLOVIR [Concomitant]
     Indication: HERPES ZOSTER
     Route: 048
  5. ACYCLOVIR [Concomitant]
     Indication: HERPES VIRUS INFECTION
  6. COUMADIN [Concomitant]
     Indication: ANTICOAGULANT THERAPY
     Route: 048
  7. NORVASC [Concomitant]
     Indication: ESSENTIAL HYPERTENSION
     Route: 048
  8. POTASSIUM CHLORIDE [Concomitant]
     Indication: HYPOKALAEMIA
     Route: 048
  9. LASIX [Concomitant]
     Indication: PULMONARY ARTERIAL HYPERTENSION
     Route: 048
  10. KALETRA [Concomitant]
     Indication: HIV INFECTION
     Route: 048
  11. COMBIVIR [Concomitant]
     Indication: HIV INFECTION
     Route: 048
  12. ALBUTEROL SULFATE [Concomitant]
     Indication: ASTHMA
     Route: 055

REACTIONS (2)
  - Muscle spasms [Unknown]
  - Headache [Unknown]
